FAERS Safety Report 7881934-2 (Version None)
Quarter: 2011Q4

REPORT INFORMATION
  Report Type: 
  Country: None (occurrence: None)
  Receive Date: 20111101
  Receipt Date: 20110603
  Transmission Date: 20120403
  Serious: No
  Sender: FDA-Public Use
  Company Number: US-AMGEN-USASP2011023038

PATIENT
  Age: 60 Year
  Sex: Male

DRUGS (1)
  1. ENBREL [Suspect]
     Indication: RHEUMATOID ARTHRITIS
     Dosage: 50 MG, QWK
     Dates: start: 20021201, end: 20110505

REACTIONS (5)
  - TOOTH FRACTURE [None]
  - INFECTION [None]
  - ARTHRALGIA [None]
  - SINUSITIS [None]
  - TOOTH INFECTION [None]
